FAERS Safety Report 7901011-1 (Version None)
Quarter: 2011Q4

REPORT INFORMATION
  Report Type: 
  Country: None (occurrence: None)
  Receive Date: 20111108
  Receipt Date: 20111101
  Transmission Date: 20120403
  Serious: Yes (Other)
  Sender: FDA-Public Use
  Company Number: US-PFIZER INC-2011259463

PATIENT
  Sex: Male
  Weight: 68.027 kg

DRUGS (4)
  1. NORVASC [Concomitant]
     Dosage: UNK
  2. SILODOSIN [Suspect]
     Indication: BLADDER IRRITATION
     Dosage: 8 MG, UNK
     Route: 048
     Dates: start: 20111007, end: 20111014
  3. LIPITOR [Concomitant]
     Dosage: UNK
  4. DETROL LA [Suspect]
     Indication: BLADDER IRRITATION
     Dosage: UNK
     Route: 048
     Dates: start: 20111007

REACTIONS (6)
  - NAUSEA [None]
  - MUSCULOSKELETAL DISCOMFORT [None]
  - OROPHARYNGEAL DISCOMFORT [None]
  - SENSORY DISTURBANCE [None]
  - ORTHOSTATIC HYPOTENSION [None]
  - MALAISE [None]
